FAERS Safety Report 7106461-1 (Version None)
Quarter: 2010Q4

REPORT INFORMATION
  Report Type: 
  Country: None (occurrence: None)
  Receive Date: 20101116
  Receipt Date: 20101111
  Transmission Date: 20110411
  Serious: Yes (Death, Hospitalization, Other)
  Sender: FDA-Public Use
  Company Number: US-PFIZER INC-2010146335

PATIENT
  Sex: Male

DRUGS (3)
  1. NEURONTIN [Suspect]
     Indication: ANXIETY
     Dosage: UNK MG, UNK
     Route: 048
     Dates: start: 20090101
  2. NEURONTIN [Suspect]
     Indication: PANIC ATTACK
  3. NEURONTIN [Suspect]
     Indication: OFF LABEL USE

REACTIONS (8)
  - BURNING SENSATION [None]
  - CARDIO-RESPIRATORY ARREST [None]
  - CHEST PAIN [None]
  - GAIT DISTURBANCE [None]
  - PAIN IN EXTREMITY [None]
  - PALPITATIONS [None]
  - PLEURITIC PAIN [None]
  - THROMBOSIS [None]
